FAERS Safety Report 22183547 (Version 2)
Quarter: 2023Q2

REPORT INFORMATION
  Report Type: Spontaneous
  Country: US (occurrence: US)
  Receive Date: 20230406
  Receipt Date: 20230425
  Transmission Date: 20230722
  Serious: No
  Sender: FDA-Public Use
  Company Number: US-APIL-2309206US

PATIENT
  Sex: Female

DRUGS (28)
  1. UBRELVY [Suspect]
     Active Substance: UBROGEPANT
     Indication: Migraine
     Dosage: 100 MG, PRN
     Route: 048
  2. QULIPTA [Suspect]
     Active Substance: ATOGEPANT
     Indication: Product used for unknown indication
     Dosage: 60 MG, QD
     Route: 048
  3. SYNTHROID [Suspect]
     Active Substance: LEVOTHYROXINE SODIUM
     Indication: Product used for unknown indication
     Route: 048
  4. WELLBUTRIN [Concomitant]
     Active Substance: BUPROPION HYDROCHLORIDE
  5. ATORVASTATIN [Concomitant]
     Active Substance: ATORVASTATIN
  6. VERAPAMIL [Concomitant]
     Active Substance: VERAPAMIL HYDROCHLORIDE
  7. NEURONTIN [Concomitant]
     Active Substance: GABAPENTIN
  8. PROCHLORPERAZINE MALEATE [Concomitant]
     Active Substance: PROCHLORPERAZINE MALEATE
  9. MECLIZINE [Concomitant]
     Active Substance: MECLIZINE HYDROCHLORIDE
  10. PROMETHAZINE [Concomitant]
     Active Substance: PROMETHAZINE HYDROCHLORIDE
  11. METHOCARBAMOLUM [Concomitant]
  12. CELEBREX [Concomitant]
     Active Substance: CELECOXIB
  13. OXYCODONE [Concomitant]
     Active Substance: OXYCODONE
  14. AMBIEN [Concomitant]
     Active Substance: ZOLPIDEM TARTRATE
  15. ZITHROMAX [Concomitant]
     Active Substance: AZITHROMYCIN DIHYDRATE
  16. FLUOXETINE [Concomitant]
     Active Substance: FLUOXETINE HYDROCHLORIDE
  17. PANTOPRAZOLE [Concomitant]
     Active Substance: PANTOPRAZOLE
  18. KLOR-CON [Concomitant]
     Active Substance: POTASSIUM CHLORIDE
  19. CEFDINIR [Concomitant]
     Active Substance: CEFDINIR
  20. NYSTATIN [Concomitant]
     Active Substance: NYSTATIN
  21. SCOPOLAMINE [Concomitant]
     Active Substance: SCOPOLAMINE
  22. VALIUM [Concomitant]
     Active Substance: DIAZEPAM
  23. NARCAN [Concomitant]
     Active Substance: NALOXONE HYDROCHLORIDE
  24. BELSOMRA [Concomitant]
     Active Substance: SUVOREXANT
  25. ZOLPIDEM [Concomitant]
     Active Substance: ZOLPIDEM TARTRATE
  26. CELECOXIB [Concomitant]
     Active Substance: CELECOXIB
  27. BUSPIRONE [Concomitant]
     Active Substance: BUSPIRONE HYDROCHLORIDE
  28. MEDROL [Concomitant]
     Active Substance: METHYLPREDNISOLONE

REACTIONS (3)
  - Therapy interrupted [Unknown]
  - Headache [Not Recovered/Not Resolved]
  - Product supply issue [Unknown]
